FAERS Safety Report 9346026 (Version 1)
Quarter: 2013Q2

REPORT INFORMATION
  Report Type: Spontaneous
  Country: US (occurrence: US)
  Receive Date: 20130613
  Receipt Date: 20130613
  Transmission Date: 20140414
  Serious: Yes (Other)
  Sender: FDA-Public Use
  Company Number: US-ELI_LILLY_AND_COMPANY-US201306002917

PATIENT
  Age: 70 Year
  Sex: Male

DRUGS (2)
  1. ALIMTA [Suspect]
     Route: 042
  2. CARBOPLATIN [Concomitant]

REACTIONS (2)
  - Lung infiltration [Unknown]
  - Off label use [Unknown]
